FAERS Safety Report 8795801 (Version 2)
Quarter: 2012Q4

REPORT INFORMATION
  Report Type: 
  Country: FR (occurrence: FR)
  Receive Date: 20120919
  Receipt Date: 20121022
  Transmission Date: 20130627
  Serious: Yes (Hospitalization)
  Sender: FDA-Public Use
  Company Number: FR-B.I. PHARMACEUTICALS,INC./RIDGEFIELD-2012-FF-01233FF

PATIENT
  Age: 90 None
  Sex: Male

DRUGS (1)
  1. PRADAXA [Suspect]
     Dosage: 185 mg
     Route: 048
     Dates: start: 201110, end: 20120722

REACTIONS (3)
  - Disseminated intravascular coagulation [Recovered/Resolved]
  - Anaemia [Recovered/Resolved]
  - Epistaxis [Recovered/Resolved]
